FAERS Safety Report 6669517-3 (Version None)
Quarter: 2010Q2

REPORT INFORMATION
  Report Type: 
  Country: None (occurrence: None)
  Receive Date: 20100406
  Receipt Date: 20100401
  Transmission Date: 20101027
  Serious: Yes (Death)
  Sender: FDA-Public Use
  Company Number: PHEH2010US03356

PATIENT
  Sex: Male
  Weight: 66.3 kg

DRUGS (17)
  1. TASIGNA [Suspect]
     Indication: GASTROINTESTINAL STROMAL TUMOUR
     Dosage: 400 MG, BID
     Route: 048
     Dates: start: 20100122, end: 20100322
  2. VICODIN [Concomitant]
     Dosage: UNK
  3. FLUCONAZOLE [Concomitant]
  4. NYSTATIN [Concomitant]
  5. POTASSIUM CHLORIDE [Concomitant]
     Dosage: UNK
  6. SENNA [Concomitant]
  7. DOCUSATE [Concomitant]
  8. ZOFRAN [Concomitant]
  9. M.V.I. [Concomitant]
     Dosage: UNK
  10. PROCHLORPERAZINE [Concomitant]
  11. CAPTOPRIL [Concomitant]
     Dosage: UNK
  12. DIOVAN [Concomitant]
     Dosage: UNK
  13. PIROXICAM [Concomitant]
     Dosage: UNK
  14. LOVASTATIN [Concomitant]
  15. CARDURA [Concomitant]
     Dosage: UNK
  16. OMEPRAZOLE [Concomitant]
  17. MECLIZINE [Concomitant]
     Dosage: UNK

REACTIONS (2)
  - GASTROINTESTINAL STROMAL TUMOUR [None]
  - MALIGNANT NEOPLASM PROGRESSION [None]
